FAERS Safety Report 13892133 (Version 1)
Quarter: 2017Q3

REPORT INFORMATION
  Report Type: Spontaneous
  Country: FR (occurrence: FR)
  Receive Date: 20170822
  Receipt Date: 20170822
  Transmission Date: 20171127
  Serious: Yes (Hospitalization)
  Sender: FDA-Public Use
  Company Number: FR-JNJFOC-20170816902

PATIENT
  Age: 82 Year
  Sex: Male

DRUGS (5)
  1. CIPROFLOXACIN. [Suspect]
     Active Substance: CIPROFLOXACIN
     Indication: URINARY INCONTINENCE
     Route: 048
     Dates: end: 20170624
  2. XARELTO [Suspect]
     Active Substance: RIVAROXABAN
     Indication: ATRIAL FIBRILLATION
     Route: 048
     Dates: end: 20170624
  3. METHOCARBAMOL W/METHYL NICOTINATE [Concomitant]
     Indication: MYALGIA
     Route: 048
     Dates: start: 201706, end: 20170614
  4. ADENOSINE PHOSPHATE [Concomitant]
     Active Substance: ADENOSINE PHOSPHATE
     Indication: MYALGIA
     Route: 048
     Dates: start: 20170614, end: 20170621
  5. SOTALOL. [Suspect]
     Active Substance: SOTALOL
     Indication: PRODUCT USED FOR UNKNOWN INDICATION
     Route: 048
     Dates: end: 20170628

REACTIONS (3)
  - Prothrombin time shortened [Recovered/Resolved]
  - Hepatitis [Recovered/Resolved]
  - Coagulation factor V level decreased [Recovered/Resolved]

NARRATIVE: CASE EVENT DATE: 20170623
